FAERS Safety Report 4365319-1 (Version None)
Quarter: 2004Q2

REPORT INFORMATION
  Report Type: 
  Country: None (occurrence: None)
  Receive Date: 20040520
  Receipt Date: 20040507
  Transmission Date: 20050107
  Serious: Yes (Other)
  Sender: FDA-Public Use
  Company Number: 2004031206

PATIENT
  Age: 57 Year
  Sex: Female
  Weight: 76.2043 kg

DRUGS (7)
  1. NEURONTIN [Suspect]
     Indication: FIBROMYALGIA
     Dosage: 800 MG (400 MG, 2 IN 1 D), ORAL
     Route: 048
     Dates: start: 20030101, end: 20040501
  2. METFORMIN HCL [Concomitant]
  3. GLIMEPIRIDE [Concomitant]
  4. CELECOXIB (CELECOXIB) [Concomitant]
  5. PRAVASTATIN SODIUM [Concomitant]
  6. IBUPROFEN [Concomitant]
  7. OMEPRAZOLE [Concomitant]

REACTIONS (5)
  - AGEUSIA [None]
  - ANOSMIA [None]
  - DIZZINESS [None]
  - LARYNGITIS [None]
  - NASOPHARYNGITIS [None]
